FAERS Safety Report 19683024 (Version 2)
Quarter: 2021Q3

REPORT INFORMATION
  Report Type: Spontaneous
  Country: JP (occurrence: JP)
  Receive Date: 20210811
  Receipt Date: 20210916
  Transmission Date: 20211014
  Serious: Yes (Hospitalization, Other)
  Sender: FDA-Public Use
  Company Number: JP-TAKEDA-2021TJP069979

PATIENT
  Age: 2 Year
  Sex: Female
  Weight: 6.4 kg

DRUGS (5)
  1. POTASSIUM BROMIDE [Concomitant]
     Active Substance: POTASSIUM BROMIDE
     Indication: SEIZURE
     Dosage: 230 UNK, BID
     Route: 048
     Dates: start: 20200215
  2. DIAPP [Suspect]
     Active Substance: DIAZEPAM
     Indication: SEIZURE
     Dosage: 2 MILLIGRAM, SINGLE
     Route: 054
     Dates: start: 20210422, end: 20210422
  3. E KEPPRA [Concomitant]
     Active Substance: LEVETIRACETAM
     Indication: SEIZURE
     Dosage: 90 UNK, BID
     Route: 048
     Dates: start: 20200106
  4. BUCCOLAM OROMUCOSAL SOLUTION 2.5MG [Suspect]
     Active Substance: MIDAZOLAM HYDROCHLORIDE
     Indication: SEIZURE
     Dosage: 2.5 MILLIGRAM, SINGLE
     Route: 050
     Dates: start: 20210422, end: 20210422
  5. VALPROATE SODIUM. [Concomitant]
     Active Substance: VALPROATE SODIUM
     Indication: SEIZURE
     Dosage: 150 UNK, BID
     Route: 048
     Dates: start: 20191108

REACTIONS (1)
  - Respiratory depression [Recovered/Resolved]

NARRATIVE: CASE EVENT DATE: 20210422
